FAERS Safety Report 12513803 (Version 1)
Quarter: 2016Q2

REPORT INFORMATION
  Report Type: Spontaneous
  Country: None (occurrence: None)
  Receive Date: 20160629
  Receipt Date: 20160629
  Transmission Date: 20160815
  Serious: Yes (Life-Threatening, Hospitalization)
  Sender: FDA-Public Use
  Company Number: None

PATIENT
  Age: 67 Year
  Sex: Male
  Weight: 67.18 kg

DRUGS (1)
  1. VARENICLINE [Suspect]
     Active Substance: VARENICLINE

REACTIONS (4)
  - Head injury [None]
  - Seizure [None]
  - Loss of consciousness [None]
  - Cerebral haemorrhage [None]

NARRATIVE: CASE EVENT DATE: 20160513
